FAERS Safety Report 9411721 (Version 1)
Quarter: 2013Q3

REPORT INFORMATION
  Report Type: Spontaneous
  Country: US (occurrence: US)
  Receive Date: 20130722
  Receipt Date: 20130722
  Transmission Date: 20140515
  Serious: No
  Sender: FDA-Public Use
  Company Number: US-COVIDIEN/TYCO HEALTHCARE/MALLINCKRODT-T201301552

PATIENT
  Age: 50 Year
  Sex: Female

DRUGS (1)
  1. MORPHINE EXTENDED-RELEASE [Suspect]
     Indication: BACK PAIN
     Dosage: 60 MG TID
     Route: 048

REACTIONS (5)
  - Nephrolithiasis [Unknown]
  - Pyrexia [Unknown]
  - Drug withdrawal syndrome [Recovered/Resolved]
  - Headache [Recovered/Resolved]
  - Vomiting [Recovered/Resolved]
